FAERS Safety Report 4962462-0 (Version None)
Quarter: 2006Q1

REPORT INFORMATION
  Report Type: 
  Country: None (occurrence: None)
  Receive Date: 20060329
  Receipt Date: 20060321
  Transmission Date: 20060701
  Serious: No
  Sender: FDA-Public Use
  Company Number: S06-USA-01167-01

PATIENT
  Age: 31 Year
  Sex: Female

DRUGS (4)
  1. CERVIDIL [Suspect]
     Indication: LABOUR INDUCTION
     Dates: start: 20060315, end: 20060315
  2. HYDRALAZINE [Concomitant]
  3. LABETALOL HCL [Concomitant]
  4. PREVACID [Concomitant]

REACTIONS (4)
  - CAESAREAN SECTION [None]
  - FOETAL DISORDER [None]
  - FOREIGN BODY TRAUMA [None]
  - IRRITABILITY [None]
